FAERS Safety Report 4339598-0 (Version None)
Quarter: 2004Q1

REPORT INFORMATION
  Report Type: 
  Country: None (occurrence: None)
  Receive Date: 20040329
  Receipt Date: 20040223
  Transmission Date: 20041129
  Serious: No
  Sender: FDA-Public Use
  Company Number: 04P-163-0251088-00

PATIENT
  Age: 54 Year
  Sex: Female
  Weight: 83.9154 kg

DRUGS (6)
  1. HUMIRA [Suspect]
     Indication: RHEUMATOID ARTHRITIS
     Dosage: 40 MG, 1 IN 2 WK, SUBCUTANEOUS
     Route: 058
     Dates: start: 20031201
  2. MIRAPEX [Concomitant]
  3. ANOVLAR [Concomitant]
  4. PREDNISONE [Concomitant]
  5. MULTI-VITAMINS [Concomitant]
  6. CALCIUM WITH VITAMIN D [Concomitant]

REACTIONS (4)
  - CONDITION AGGRAVATED [None]
  - FAECES DISCOLOURED [None]
  - LOOSE STOOLS [None]
  - PAIN IN EXTREMITY [None]
